FAERS Safety Report 23839263 (Version 1)
Quarter: 2024Q2

REPORT INFORMATION
  Report Type: Spontaneous
  Country: US (occurrence: US)
  Receive Date: 20240509
  Receipt Date: 20240509
  Transmission Date: 20240716
  Serious: No
  Sender: FDA-Public Use
  Company Number: US-ABBVIE-5751837

PATIENT
  Sex: Female

DRUGS (1)
  1. QULIPTA [Suspect]
     Active Substance: ATOGEPANT
     Indication: Product used for unknown indication
     Route: 048

REACTIONS (1)
  - Product dispensing error [Unknown]
